FAERS Safety Report 14940611 (Version 1)
Quarter: 2018Q2

REPORT INFORMATION
  Report Type: Report from Study
  Country: GB (occurrence: GB)
  Receive Date: 20180525
  Receipt Date: 20180525
  Transmission Date: 20180711
  Serious: Yes (Other)
  Sender: FDA-Public Use
  Company Number: GB-TEVA-2018-GB-895410

PATIENT
  Sex: Female

DRUGS (1)
  1. COPAXONE [Suspect]
     Active Substance: GLATIRAMER ACETATE
     Route: 058
     Dates: start: 20170712

REACTIONS (9)
  - Radiotherapy [Unknown]
  - Syncope [Unknown]
  - Sepsis [Unknown]
  - Chemotherapy [Unknown]
  - Dizziness [Unknown]
  - Heart rate increased [Unknown]
  - Product storage error [Unknown]
  - Adverse drug reaction [Unknown]
  - Dysgeusia [Unknown]
